FAERS Safety Report 4693538-3 (Version None)
Quarter: 2005Q2

REPORT INFORMATION
  Report Type: 
  Country: None (occurrence: None)
  Receive Date: 20050617
  Receipt Date: 20050215
  Transmission Date: 20051028
  Serious: Yes (Life-Threatening)
  Sender: FDA-Public Use
  Company Number: JP-ROCHE-396175

PATIENT
  Age: 30 Year
  Sex: Male

DRUGS (6)
  1. TAMIFLU [Suspect]
     Route: 048
     Dates: start: 20050209, end: 20050209
  2. MUCOSTA [Concomitant]
     Indication: DRUG USE FOR UNKNOWN INDICATION
     Route: 048
     Dates: start: 20050209, end: 20050209
  3. CALONAL [Concomitant]
     Indication: DRUG USE FOR UNKNOWN INDICATION
     Route: 048
     Dates: start: 20050209, end: 20050209
  4. FOSMICIN [Concomitant]
     Route: 065
     Dates: start: 20050209, end: 20050209
  5. UNSPECIFIED DRUG [Concomitant]
     Dosage: DRUG STATED AS ^PLEVITA S^
     Dates: start: 20050209, end: 20050209
  6. SOLDEM [Concomitant]
     Indication: DRUG USE FOR UNKNOWN INDICATION
     Dosage: DRIP OF AMPULE.
     Route: 050

REACTIONS (2)
  - LYMPHOCYTE STIMULATION TEST POSITIVE [None]
  - RESPIRATORY ARREST [None]
